FAERS Safety Report 9439127 (Version 2)
Quarter: 2013Q3

REPORT INFORMATION
  Report Type: Spontaneous
  Country: JP (occurrence: JP)
  Receive Date: 20130802
  Receipt Date: 20130816
  Transmission Date: 20140515
  Serious: Yes (Life-Threatening, Hospitalization)
  Sender: FDA-Public Use
  Company Number: JP-ASTRAZENECA-2013SE59567

PATIENT
  Age: 26 Year
  Sex: Male
  Weight: 43 kg

DRUGS (10)
  1. BLOPRESS [Suspect]
     Indication: HYPERTENSION
     Route: 048
     Dates: start: 20130322, end: 20130726
  2. BLOPRESS [Suspect]
     Indication: HYPERTENSION
     Route: 048
     Dates: start: 20130727, end: 20130727
  3. AMLODIN OD [Suspect]
     Indication: HYPERTENSION
     Route: 048
     Dates: end: 20130726
  4. AMLODIN OD [Suspect]
     Indication: HYPERTENSION
     Route: 048
     Dates: start: 20130727, end: 20130727
  5. CALTAN [Concomitant]
     Route: 048
     Dates: start: 20130322
  6. BUFFERIN COMBINATION TABLET A [Concomitant]
     Route: 048
     Dates: start: 20130322
  7. ARGAMATE [Concomitant]
     Route: 048
     Dates: start: 20130322
  8. FOSRENOL [Concomitant]
     Route: 048
     Dates: start: 20130322
  9. GLAKAY [Concomitant]
     Route: 048
     Dates: start: 20130322
  10. ROCALTROL [Concomitant]
     Route: 048
     Dates: start: 20130322

REACTIONS (4)
  - Intentional overdose [Recovering/Resolving]
  - Toxicity to various agents [Recovering/Resolving]
  - Shock [Recovering/Resolving]
  - Hyperkalaemia [Recovering/Resolving]
